FAERS Safety Report 4390189-5 (Version None)
Quarter: 2004Q2

REPORT INFORMATION
  Report Type: 
  Country: None (occurrence: None)
  Receive Date: 20040630
  Receipt Date: 20040610
  Transmission Date: 20050107
  Serious: Yes (Hospitalization)
  Sender: FDA-Public Use
  Company Number: MEDI-0002002

PATIENT
  Age: 21 Month
  Sex: Male
  Weight: 9.5255 kg

DRUGS (12)
  1. SYNAGIS (PALIVIZUMAB) [Suspect]
     Indication: ANTIVIRAL PROPHYLAXIS
     Dosage: 1 IN 30 D, INTRAMUSCULAR
     Route: 030
     Dates: start: 20031001, end: 20040322
  2. SYNAGIS (PALIVIZUMAB) [Suspect]
     Indication: ANTIVIRAL PROPHYLAXIS
     Dosage: 1 IN 30 D, INTRAMUSCULAR
     Route: 030
     Dates: start: 20031001
  3. ZANTAC [Concomitant]
  4. ALBUTEROL [Concomitant]
  5. XOPENEX [Concomitant]
  6. FLOVENT [Concomitant]
  7. CHLORPHENIRAMINE MALEATE [Concomitant]
  8. REGLAN [Concomitant]
  9. PRILOSEC [Concomitant]
  10. RYNATAN (CHLORPHENAMINE TANNATE, PHENYLEPHRINE TANNATE, MEPYRAMINE TAN [Concomitant]
  11. PEDIASURE (PROTEIN, FATS NOS, VITAMINS NOS, MINERALS NOS, CARBOHYDRATE [Concomitant]
  12. ADVIL [Concomitant]

REACTIONS (13)
  - COUGH [None]
  - DEHYDRATION [None]
  - ERYTHEMA [None]
  - EYELID PTOSIS [None]
  - HEART RATE INCREASED [None]
  - HYPOXIA [None]
  - LETHARGY [None]
  - MARKEDLY REDUCED DIETARY INTAKE [None]
  - OTITIS MEDIA [None]
  - PETECHIAE [None]
  - PNEUMONIA [None]
  - PUPILLARY DISORDER [None]
  - PYREXIA [None]
